FAERS Safety Report 7777314-0 (Version None)
Quarter: 2011Q3

REPORT INFORMATION
  Report Type: 
  Country: None (occurrence: None)
  Receive Date: 20110926
  Receipt Date: 20110921
  Transmission Date: 20111222
  Serious: Yes (Death, Hospitalization)
  Sender: FDA-Public Use
  Company Number: PHHY2011CR83630

PATIENT
  Age: 51 Year
  Sex: Male

DRUGS (1)
  1. DIOVAN HCT [Suspect]
     Indication: HYPERTENSION
     Dosage: 160 MG VALS AND 12.5 MG HYDRO, PER DAY
     Route: 048

REACTIONS (3)
  - GASTROINTESTINAL ANASTOMOTIC LEAK [None]
  - DIVERTICULUM INTESTINAL [None]
  - DEATH [None]
